FAERS Safety Report 4618603-8 (Version None)
Quarter: 2005Q1

REPORT INFORMATION
  Report Type: 
  Country: None (occurrence: None)
  Receive Date: 20050323
  Receipt Date: 20050314
  Transmission Date: 20050727
  Serious: Yes (Death, Hospitalization)
  Sender: FDA-Public Use
  Company Number: RS005051-F

PATIENT
  Age: 66 Year
  Sex: Male

DRUGS (10)
  1. RABEPRAZOLE SODIUM [Suspect]
     Dosage: 20 MG, 1 IN 1 D, ORAL
     Route: 048
     Dates: end: 20050102
  2. ZOCOR [Suspect]
     Dosage: 40 MG, ORAL
     Route: 048
     Dates: start: 20020101
  3. LASILIX (FUROSEMIDE) [Concomitant]
  4. ALDACTONE [Concomitant]
  5. TRIATEC 9RAMIPRIL) [Concomitant]
  6. DUPHALAC (LACTULOSE0 [Concomitant]
  7. VASTAREL (TRIMETAZIDINE HYDROCHLORIDE) [Concomitant]
  8. LEVOTHYROXINE SODIUM [Concomitant]
  9. ACEBUTOL (ACEBUTOLOL) [Concomitant]
  10. MOLSIDOMINE (MOLSIDOMINE) [Concomitant]

REACTIONS (15)
  - ABDOMINAL PAIN [None]
  - ABDOMINAL RIGIDITY [None]
  - ANTI-THYROID ANTIBODY POSITIVE [None]
  - ASCITES INFECTION [None]
  - BLOOD THYROID STIMULATING HORMONE INCREASED [None]
  - CONDITION AGGRAVATED [None]
  - ENCEPHALOPATHY [None]
  - HEPATIC CIRRHOSIS [None]
  - HEPATITIS [None]
  - MURPHY'S SIGN POSITIVE [None]
  - MUSCLE NECROSIS [None]
  - PAIN IN EXTREMITY [None]
  - RECTAL HAEMORRHAGE [None]
  - RHABDOMYOLYSIS [None]
  - SHOCK [None]
